FAERS Safety Report 17966893 (Version 1)
Quarter: 2020Q2

REPORT INFORMATION
  Report Type: Spontaneous
  Country: US (occurrence: US)
  Receive Date: 20200629
  Receipt Date: 20200629
  Transmission Date: 20200714
  Serious: No
  Sender: FDA-Public Use
  Company Number: None

PATIENT
  Sex: Female

DRUGS (1)
  1. HUMIRA [Suspect]
     Active Substance: ADALIMUMAB
     Indication: PSORIASIS
     Dosage: 1 PEN EVERY OTHER WEEK SQ
     Route: 058
     Dates: start: 20190731, end: 20200529

REACTIONS (2)
  - Therapy interrupted [None]
  - Drug ineffective [None]
